FAERS Safety Report 16479436 (Version 1)
Quarter: 2019Q2

REPORT INFORMATION
  Report Type: Report from Study
  Country: US (occurrence: US)
  Receive Date: 20190626
  Receipt Date: 20190626
  Transmission Date: 20190711
  Serious: Yes (Death, Hospitalization)
  Sender: FDA-Public Use
  Company Number: US-TESARO, INC.-2018-TSO1023-US

PATIENT
  Sex: Female
  Weight: 62 kg

DRUGS (2)
  1. ZEJULA [Suspect]
     Active Substance: NIRAPARIB
     Indication: OVARIAN CANCER
     Dosage: 100 MG, QD
     Route: 048
  2. ZEJULA [Suspect]
     Active Substance: NIRAPARIB
     Dosage: 100 MG ONCE DAILY
     Route: 048
     Dates: start: 20190212

REACTIONS (5)
  - Death [Fatal]
  - Disease progression [Unknown]
  - Underdose [Unknown]
  - Abdominal discomfort [Unknown]
  - Oropharyngeal pain [Unknown]
